FAERS Safety Report 7353443 (Version 2)
Quarter: 2013Q3

REPORT INFORMATION
  Report Type: Spontaneous
  Country: None (occurrence: None)
  Receive Date: 20100326
  Receipt Date: 20130708
  Transmission Date: 20140515
  Serious: Yes (Hospitalization)
  Sender: FDA-Public Use
  Company Number: AUR-APL-2010-00772

PATIENT
  Age: 32 Year
  Sex: Male

DRUGS (1)
  1. ZOLPIDEM (ZOLPIDEM) [Suspect]
     Indication: PRODUCT USED FOR UNKNOWN INDICATION
     Dosage: 40 MG - X1- ORAL
     Route: 048

REACTIONS (14)
  - Hallucination, auditory [None]
  - Overdose [None]
  - Intentional self-injury [None]
  - Anxiety [None]
  - Agitation [None]
  - Insomnia [None]
  - Depressed mood [None]
  - Disorientation [None]
  - Confusional state [None]
  - Feeling guilty [None]
  - Feelings of worthlessness [None]
  - Stab wound [None]
  - Bipolar I disorder [None]
  - Borderline personality disorder [None]
